FAERS Safety Report 18554512 (Version 2)
Quarter: 2022Q3

REPORT INFORMATION
  Report Type: Spontaneous
  Country: CA (occurrence: CA)
  Receive Date: 20201127
  Receipt Date: 20220712
  Transmission Date: 20221027
  Serious: Yes (Other)
  Sender: FDA-Public Use
  Company Number: CA-GLAXOSMITHKLINE-CA2020GSK234934

PATIENT

DRUGS (1)
  1. AVANDIA [Suspect]
     Active Substance: ROSIGLITAZONE MALEATE
     Indication: Diabetes mellitus
     Dosage: 4 MG, QD
     Route: 048
     Dates: start: 20010402, end: 20090715

REACTIONS (4)
  - Myocardial infarction [Unknown]
  - Acute kidney injury [Unknown]
  - Coronary artery disease [Unknown]
  - Cardiac disorder [Unknown]
